FAERS Safety Report 5358582-1 (Version None)
Quarter: 2007Q2

REPORT INFORMATION
  Report Type: 
  Country: None (occurrence: None)
  Receive Date: 20070613
  Receipt Date: 20070613
  Transmission Date: 20071010
  Serious: No
  Sender: FDA-Public Use
  Company Number: None

PATIENT
  Sex: Female

DRUGS (1)
  1. AVELOX [Suspect]
     Dosage: 400 MG IV DRIP
     Route: 041
     Dates: start: 20070601, end: 20070603

REACTIONS (2)
  - DRUG HYPERSENSITIVITY [None]
  - RASH [None]
